FAERS Safety Report 10399037 (Version 3)
Quarter: 2014Q3

REPORT INFORMATION
  Report Type: Spontaneous
  Country: JP (occurrence: JP)
  Receive Date: 20140821
  Receipt Date: 20140924
  Transmission Date: 20150326
  Serious: Yes (Hospitalization, Other)
  Sender: FDA-Public Use
  Company Number: PHHY2014JP100750

PATIENT
  Age: 40 Year
  Sex: Female

DRUGS (7)
  1. NICARDIPINE [Suspect]
     Active Substance: NICARDIPINE
     Route: 041
  2. INSULIN LISPRO [Suspect]
     Active Substance: INSULIN LISPRO
     Indication: DIABETES MELLITUS
     Dosage: 12 IU, PER DAY
  3. INSULIN LISPRO [Suspect]
     Active Substance: INSULIN LISPRO
     Dosage: 48 IU, PER DAY
  4. INSULIN [Suspect]
     Active Substance: INSULIN NOS
     Dosage: 6 IU, PER DAY
  5. METHYLDOPA. [Suspect]
     Active Substance: METHYLDOPA
     Route: 048
  6. AZELNIDIPINE [Suspect]
     Active Substance: AZELNIDIPINE
     Dosage: 16 MG, DAILY
     Route: 048
  7. APRESOLIN [Suspect]
     Active Substance: HYDRALAZINE HYDROCHLORIDE
     Indication: HYPERTENSION
     Dosage: 30 MG, DAILY
     Route: 048

REACTIONS (14)
  - Ascites [Recovered/Resolved]
  - Diarrhoea [Unknown]
  - Pre-eclampsia [Unknown]
  - Blood pressure inadequately controlled [Unknown]
  - Hypertension [Recovering/Resolving]
  - Premature delivery [Unknown]
  - Vomiting [Unknown]
  - Oedema peripheral [Recovered/Resolved]
  - Hypoalbuminaemia [Unknown]
  - Proteinuria [Unknown]
  - Abdominal pain upper [Unknown]
  - Gastroenteritis yersinia [Unknown]
  - Maternal exposure during pregnancy [Unknown]
  - Umbilical cord vascular disorder [Unknown]
